FAERS Safety Report 18120590 (Version 2)
Quarter: 2020Q4

REPORT INFORMATION
  Report Type: Spontaneous
  Country: US (occurrence: US)
  Receive Date: 20200806
  Receipt Date: 20201208
  Transmission Date: 20210113
  Serious: Yes (Other)
  Sender: FDA-Public Use
  Company Number: US-B.I. PHARMACEUTICALS,INC./RIDGEFIELD-2020-BI-039575

PATIENT
  Age: 79 Year
  Sex: Female
  Weight: 56.2 kg

DRUGS (15)
  1. PROGESTERONE. [Concomitant]
     Active Substance: PROGESTERONE
     Indication: PRODUCT USED FOR UNKNOWN INDICATION
  2. VITAMINS NOS [Concomitant]
     Active Substance: VITAMINS
     Indication: PRODUCT USED FOR UNKNOWN INDICATION
  3. GOCOVRI [Suspect]
     Active Substance: AMANTADINE
     Dosage: EXTENDED RELEASE
     Route: 048
     Dates: start: 201905, end: 201905
  4. GOCOVRI [Suspect]
     Active Substance: AMANTADINE
     Dosage: EXTENDED RELEASE
     Route: 048
     Dates: start: 201905
  5. GOCOVRI [Suspect]
     Active Substance: AMANTADINE
     Indication: DYSKINESIA
     Dosage: EXTENDED RELEASE
     Route: 048
     Dates: start: 20190501, end: 202005
  6. GOCOVRI [Suspect]
     Active Substance: AMANTADINE
     Route: 048
  7. TEMAZEPAM. [Concomitant]
     Active Substance: TEMAZEPAM
     Indication: PRODUCT USED FOR UNKNOWN INDICATION
  8. ATROPINE. [Concomitant]
     Active Substance: ATROPINE
     Indication: PRODUCT USED FOR UNKNOWN INDICATION
  9. GOCOVRI [Suspect]
     Active Substance: AMANTADINE
     Route: 048
  10. ESTRADIOL. [Concomitant]
     Active Substance: ESTRADIOL
     Indication: PRODUCT USED FOR UNKNOWN INDICATION
  11. MIRAPEX [Suspect]
     Active Substance: PRAMIPEXOLE DIHYDROCHLORIDE
     Indication: PRODUCT USED FOR UNKNOWN INDICATION
  12. CARBIDOPA/LEVODOPA [Suspect]
     Active Substance: CARBIDOPA\LEVODOPA
     Indication: PRODUCT USED FOR UNKNOWN INDICATION
  13. CLOZAPINE. [Suspect]
     Active Substance: CLOZAPINE
     Indication: PARKINSON^S DISEASE PSYCHOSIS
     Dosage: 12.5 (1/2)PILL??6 PILLS
     Dates: start: 2020, end: 2020
  14. RIVASTIGMINE. [Concomitant]
     Active Substance: RIVASTIGMINE
     Indication: PRODUCT USED FOR UNKNOWN INDICATION
  15. GOCOVRI [Suspect]
     Active Substance: AMANTADINE
     Route: 048

REACTIONS (17)
  - Wrist surgery [Unknown]
  - Anorectal swelling [Not Recovered/Not Resolved]
  - Somnolence [Not Recovered/Not Resolved]
  - Obsessive-compulsive disorder [Unknown]
  - Product dose omission issue [Unknown]
  - Fatigue [Not Recovered/Not Resolved]
  - Constipation [Unknown]
  - Wrist fracture [Recovered/Resolved]
  - Fall [Unknown]
  - Cognitive disorder [Unknown]
  - Abdominal distension [Not Recovered/Not Resolved]
  - Dizziness [Not Recovered/Not Resolved]
  - Fungal infection [Not Recovered/Not Resolved]
  - Psychotic disorder [Unknown]
  - Weight increased [Unknown]
  - Parkinson^s disease psychosis [Not Recovered/Not Resolved]
  - Wrist fracture [Unknown]

NARRATIVE: CASE EVENT DATE: 20190514
